FAERS Safety Report 5008103-8 (Version None)
Quarter: 2006Q2

REPORT INFORMATION
  Report Type: 
  Country: None (occurrence: None)
  Receive Date: 20060517
  Receipt Date: 20060503
  Transmission Date: 20061013
  Serious: Yes (Death)
  Sender: FDA-Public Use
  Company Number: 200610587BVD

PATIENT
  Age: 75 Year
  Sex: Female
  Weight: 71.5 kg

DRUGS (14)
  1. AVELOX [Suspect]
     Indication: DIABETIC FOOT INFECTION
     Dosage: 400 MG, TOTAL DAILY, INTRAVENOUS
     Route: 042
     Dates: start: 20060214, end: 20060220
  2. AVELOX [Suspect]
     Indication: GANGRENE
     Dosage: 400 MG, TOTAL DAILY, INTRAVENOUS
     Route: 042
     Dates: start: 20060214, end: 20060220
  3. ASPIRIN [Concomitant]
  4. DILATREND [Concomitant]
  5. PRAVASIN [Concomitant]
  6. DELIX [Concomitant]
  7. BERLOSIN [Concomitant]
  8. TIMOX [Concomitant]
  9. SAROTEN [Concomitant]
  10. GABAPENTIN [Concomitant]
  11. ACC LONG [Concomitant]
  12. TRAMAL LONG [Concomitant]
  13. LANTUS [Concomitant]
  14. ACTRAPID [Concomitant]

REACTIONS (12)
  - ABDOMINAL SEPSIS [None]
  - ANURIA [None]
  - APPENDICITIS [None]
  - CARDIOVASCULAR INSUFFICIENCY [None]
  - CHOLECYSTITIS [None]
  - COLITIS ULCERATIVE [None]
  - DISTURBANCE IN ATTENTION [None]
  - DRUG INEFFECTIVE [None]
  - DRUG TOLERANCE [None]
  - HAEMODIALYSIS [None]
  - MEGACOLON [None]
  - PERITONITIS [None]
